FAERS Safety Report 8497225 (Version 3)
Quarter: 2012Q4

REPORT INFORMATION
  Report Type: 
  Country: US (occurrence: US)
  Receive Date: 20120406
  Receipt Date: 20121003
  Transmission Date: 20130627
  Serious: Yes (Hospitalization)
  Sender: FDA-Public Use
  Company Number: US-SANOFI-AVENTIS-2012SA021009

PATIENT
  Age: 82 Year
  Sex: Female
  Weight: 64 kg

DRUGS (16)
  1. LANTUS [Suspect]
     Indication: DIABETES
     Dosage: every morning with breakfast Dose:13 unit(s)
     Route: 058
     Dates: start: 2011
  2. NOVOLOG [Concomitant]
  3. FOSINOPRIL [Concomitant]
  4. PLAVIX [Concomitant]
  5. LABETALOL [Concomitant]
     Indication: BLOOD PRESSURE
  6. AMITRIPTYLINE [Concomitant]
     Indication: NEUROPATHY
  7. SIMVASTATIN [Concomitant]
     Indication: HIGH CHOLESTEROL
  8. LYRICA [Concomitant]
     Indication: NEUROPATHY
  9. VITAMIN B6 [Concomitant]
     Indication: ANEMIA
  10. VITAMIN B12 [Concomitant]
     Indication: ANEMIA
  11. FOLIC ACID [Concomitant]
  12. PRILOSEC [Concomitant]
  13. LEVOTHYROXINE [Concomitant]
     Indication: THYROID DISORDER
  14. ALL OTHER THERAPEUTIC PRODUCTS [Concomitant]
     Indication: CLOSTRIDIUM DIFFICILE INFECTION
  15. LASIX [Concomitant]
     Indication: EDEMA
  16. PROCRIT [Concomitant]
     Indication: ANEMIA
     Dosage: Dose:40000 unit(s)

REACTIONS (1)
  - Clostridium difficile infection [Unknown]
